FAERS Safety Report 4827911-7 (Version None)
Quarter: 2005Q4

REPORT INFORMATION
  Report Type: 
  Country: None (occurrence: None)
  Receive Date: 20051110
  Receipt Date: 20051103
  Transmission Date: 20060501
  Serious: Yes (Life-Threatening, Hospitalization, Other)
  Sender: FDA-Public Use
  Company Number: 200511378BWH

PATIENT
  Sex: Female

DRUGS (1)
  1. CIPRO [Suspect]
     Indication: FUNGAL INFECTION
     Dates: end: 20040101

REACTIONS (1)
  - HAEMORRHOIDAL HAEMORRHAGE [None]
